FAERS Safety Report 8196665-1 (Version None)
Quarter: 2012Q1

REPORT INFORMATION
  Report Type: 
  Country: None (occurrence: None)
  Receive Date: 20120309
  Receipt Date: 20120227
  Transmission Date: 20120608
  Serious: Yes (Death, Hospitalization)
  Sender: FDA-Public Use
  Company Number: IT-ACTELION-A-CH2012-61813

PATIENT
  Age: 46 Year
  Sex: Female

DRUGS (5)
  1. METHADON HCL TAB [Concomitant]
  2. TRACLEER [Suspect]
     Indication: PULMONARY ARTERIAL HYPERTENSION
     Dosage: 125 MG, BID
     Route: 048
     Dates: start: 20050701, end: 20061221
  3. FUROSEMIDE [Concomitant]
  4. WARFARIN SODIUM [Concomitant]
  5. TRACLEER [Suspect]
     Dosage: 62.5 MG, BID
     Route: 048
     Dates: start: 20050601, end: 20050701

REACTIONS (4)
  - ASPARTATE AMINOTRANSFERASE INCREASED [None]
  - ALANINE AMINOTRANSFERASE INCREASED [None]
  - TRANSAMINASES INCREASED [None]
  - PNEUMONIA [None]
